FAERS Safety Report 8138816-0 (Version None)
Quarter: 2012Q1

REPORT INFORMATION
  Report Type: 
  Country: None (occurrence: None)
  Receive Date: 20120215
  Receipt Date: 20120207
  Transmission Date: 20120608
  Serious: Yes (Hospitalization, Other)
  Sender: FDA-Public Use
  Company Number: JP-PFIZER INC-2012013538

PATIENT
  Age: 79 Year
  Sex: Female

DRUGS (4)
  1. MEDROXYPROGESTERONE ACETATE [Suspect]
     Indication: BREAST CANCER METASTATIC
     Dosage: 400 MG, 1X/DAY
     Dates: start: 20090101
  2. TIOTROPIUM [Concomitant]
  3. TEGAFUR/GIMERACIL/OTERACIL POTASSIUM [Concomitant]
     Dosage: 60 MG, 1X/DAY
  4. ZOLEDRONOC ACID [Suspect]
     Indication: BREAST CANCER METASTATIC
     Dosage: 4.0 MG, MONTHLY
     Dates: start: 20090101

REACTIONS (3)
  - ISOLATED ADRENOCORTICOTROPIC HORMONE DEFICIENCY [None]
  - HYPOPITUITARISM [None]
  - TUBULOINTERSTITIAL NEPHRITIS [None]
